FAERS Safety Report 14709544 (Version 2)
Quarter: 2018Q2

REPORT INFORMATION
  Report Type: Spontaneous
  Country: JP (occurrence: JP)
  Receive Date: 20180403
  Receipt Date: 20180423
  Transmission Date: 20180711
  Serious: Yes (Hospitalization)
  Sender: FDA-Public Use
  Company Number: JP-SA-2018SA095775

PATIENT
  Age: 70 Year
  Sex: Male

DRUGS (12)
  1. DAPTOMYCIN. [Suspect]
     Active Substance: DAPTOMYCIN
     Indication: POST PROCEDURAL INFECTION
     Route: 065
  2. TEICOPLANIN SODIUM [Suspect]
     Active Substance: TEICOPLANIN
     Indication: POST PROCEDURAL INFECTION
     Route: 065
  3. RIFAMPICIN [Suspect]
     Active Substance: RIFAMPIN
     Indication: POST PROCEDURAL INFECTION
     Route: 065
  4. CEFAMEZIN [Suspect]
     Active Substance: CEFAZOLIN
     Indication: POST PROCEDURAL INFECTION
     Dosage: INFUSION
     Route: 065
  5. MINOMYCIN [Suspect]
     Active Substance: MINOCYCLINE HYDROCHLORIDE
     Indication: OSTEOMYELITIS
     Route: 048
  6. DAPTOMYCIN. [Suspect]
     Active Substance: DAPTOMYCIN
     Indication: OSTEOMYELITIS
     Route: 065
  7. CIPROXAN [Suspect]
     Active Substance: CIPROFLOXACIN
     Indication: POST PROCEDURAL INFECTION
     Route: 065
  8. CEFAMEZIN [Suspect]
     Active Substance: CEFAZOLIN
     Indication: OSTEOMYELITIS
     Dosage: INFUSION
     Route: 065
  9. CIPROXAN [Suspect]
     Active Substance: CIPROFLOXACIN
     Indication: OSTEOMYELITIS
     Route: 065
  10. RIFAMPICIN [Suspect]
     Active Substance: RIFAMPIN
     Indication: OSTEOMYELITIS
     Route: 065
  11. MINOMYCIN [Suspect]
     Active Substance: MINOCYCLINE HYDROCHLORIDE
     Indication: POST PROCEDURAL INFECTION
     Route: 048
  12. TEICOPLANIN SODIUM [Suspect]
     Active Substance: TEICOPLANIN
     Indication: OSTEOMYELITIS
     Route: 065

REACTIONS (7)
  - Body temperature increased [Recovered/Resolved]
  - Lymphocyte morphology abnormal [Recovered/Resolved]
  - C-reactive protein increased [Recovered/Resolved]
  - Leukaemoid reaction [Recovered/Resolved]
  - White blood cell count increased [Recovered/Resolved]
  - Toxic skin eruption [Recovered/Resolved]
  - Blast cells present [Recovered/Resolved]
